FAERS Safety Report 7224471-0 (Version None)
Quarter: 2011Q1

REPORT INFORMATION
  Report Type: 
  Country: None (occurrence: None)
  Receive Date: 20110113
  Receipt Date: 20110111
  Transmission Date: 20110831
  Serious: No
  Sender: FDA-Public Use
  Company Number: US-PFIZER INC-2011007093

PATIENT
  Sex: Female

DRUGS (2)
  1. PRISTIQ [Suspect]
     Dosage: 100 MG, UNK
     Dates: end: 20110110
  2. ADDERALL 10 [Suspect]
     Dosage: UNK
     Dates: end: 20110106

REACTIONS (4)
  - EYE PAIN [None]
  - NAUSEA [None]
  - HEADACHE [None]
  - ANXIETY [None]
